FAERS Safety Report 9082321 (Version 1)
Quarter: 2013Q1

REPORT INFORMATION
  Report Type: Report from Study
  Country: US (occurrence: US)
  Receive Date: 20130130
  Receipt Date: 20130130
  Transmission Date: 20140127
  Serious: No
  Sender: FDA-Public Use
  Company Number: US-ABBOTT-12P-163-0957622-00

PATIENT
  Age: 45 None
  Sex: Male
  Weight: 79 kg

DRUGS (4)
  1. HUMIRA 40 MG/0.8 ML PEN [Suspect]
     Indication: ANKYLOSING SPONDYLITIS
     Route: 058
     Dates: start: 2009, end: 201202
  2. AMBIEN [Concomitant]
     Indication: INSOMNIA
  3. OMEPRAZOLE [Concomitant]
     Indication: GASTROOESOPHAGEAL REFLUX DISEASE
  4. SOMA [Concomitant]
     Indication: MUSCLE SPASMS

REACTIONS (2)
  - Corneal implant [Recovering/Resolving]
  - Sinusitis [Recovered/Resolved]
